FAERS Safety Report 6766759-3 (Version None)
Quarter: 2010Q2

REPORT INFORMATION
  Report Type: 
  Country: None (occurrence: None)
  Receive Date: 20100611
  Receipt Date: 20100607
  Transmission Date: 20101027
  Serious: Yes (Hospitalization, Other)
  Sender: FDA-Public Use
  Company Number: DE-ROXANE LABORATORIES, INC.-2010-RO-00690RO

PATIENT
  Age: 49 Year
  Sex: Female

DRUGS (5)
  1. ZOLPIDEM [Suspect]
     Indication: INSOMNIA
  2. ZOLPIDEM [Suspect]
     Dosage: 10 MG
  3. LORAZEPAM [Suspect]
  4. DIAZEPAM [Suspect]
     Indication: DRUG WITHDRAWAL SYNDROME
  5. BACLOFEN [Suspect]

REACTIONS (9)
  - ARRHYTHMIA [None]
  - BANKRUPTCY [None]
  - DRUG DEPENDENCE [None]
  - DRUG INEFFECTIVE FOR UNAPPROVED INDICATION [None]
  - DRUG TOLERANCE [None]
  - DRUG WITHDRAWAL CONVULSIONS [None]
  - DRUG WITHDRAWAL SYNDROME [None]
  - GRAND MAL CONVULSION [None]
  - PRESCRIPTION FORM TAMPERING [None]
